FAERS Safety Report 12430334 (Version 2)
Quarter: 2016Q3

REPORT INFORMATION
  Report Type: Spontaneous
  Country: US (occurrence: US)
  Receive Date: 20160602
  Receipt Date: 20160720
  Transmission Date: 20161109
  Serious: Yes (Hospitalization, Other)
  Sender: FDA-Public Use
  Company Number: US-GLAXOSMITHKLINE-US2016078041

PATIENT
  Age: 72 Year
  Sex: Female

DRUGS (4)
  1. INCRUSE ELLIPTA [Suspect]
     Active Substance: UMECLIDINIUM BROMIDE
     Indication: CHRONIC OBSTRUCTIVE PULMONARY DISEASE
     Dosage: UNK
     Route: 055
     Dates: start: 201605
  2. VENTOLIN HFA [Suspect]
     Active Substance: ALBUTEROL SULFATE
     Indication: DYSPNOEA
  3. LASIX [Suspect]
     Active Substance: FUROSEMIDE
     Indication: CARDIAC FAILURE
     Dosage: UNK
  4. VENTOLIN HFA [Suspect]
     Active Substance: ALBUTEROL SULFATE
     Indication: CHRONIC OBSTRUCTIVE PULMONARY DISEASE
     Dosage: 2 PUFF(S), PRN
     Route: 055

REACTIONS (6)
  - Cardiac failure [Recovered/Resolved]
  - Halo vision [Recovered/Resolved]
  - Vision blurred [Recovering/Resolving]
  - Renal disorder [Recovered/Resolved]
  - Headache [Recovered/Resolved]
  - Visual impairment [Recovering/Resolving]

NARRATIVE: CASE EVENT DATE: 201604
